FAERS Safety Report 9883532 (Version 5)
Quarter: 2014Q4

REPORT INFORMATION
  Report Type: Spontaneous
  Country: US (occurrence: US)
  Receive Date: 20140210
  Receipt Date: 20141114
  Transmission Date: 20150529
  Serious: Yes (Other)
  Sender: FDA-Public Use
  Company Number: US-BIOGENIDEC-2014BI010659

PATIENT
  Age: 70 Year
  Sex: Female

DRUGS (36)
  1. LEVOXYL [Concomitant]
     Active Substance: LEVOTHYROXINE SODIUM
  2. DILTIAZEM [Concomitant]
     Active Substance: DILTIAZEM
  3. MIRAPEX [Concomitant]
     Active Substance: PRAMIPEXOLE DIHYDROCHLORIDE
  4. LASIX [Concomitant]
     Active Substance: FUROSEMIDE
  5. LYRICA [Concomitant]
     Active Substance: PREGABALIN
  6. REFRESH [Concomitant]
     Active Substance: UNSPECIFIED INGREDIENT
  7. ARAVA [Concomitant]
     Active Substance: LEFLUNOMIDE
  8. PREMARIN [Concomitant]
     Active Substance: ESTROGENS, CONJUGATED
  9. COLACE [Concomitant]
     Active Substance: DOCUSATE SODIUM
  10. FERROUS SULFATE [Concomitant]
     Active Substance: FERROUS SULFATE\FERROUS SULFATE, DRIED
  11. CALCIUM [Concomitant]
     Active Substance: CALCIUM
  12. NORVASC [Concomitant]
     Active Substance: AMLODIPINE BESYLATE
  13. VASOTEC [Concomitant]
     Active Substance: ENALAPRIL MALEATE
  14. KLONOPIN [Concomitant]
     Active Substance: CLONAZEPAM
  15. XARELTO [Concomitant]
     Active Substance: RIVAROXABAN
  16. NASONEX [Concomitant]
     Active Substance: MOMETASONE FUROATE
  17. ATACAND [Concomitant]
     Active Substance: CANDESARTAN CILEXETIL
  18. LEVOXYL [Concomitant]
     Active Substance: LEVOTHYROXINE SODIUM
  19. DIOVAN [Concomitant]
     Active Substance: VALSARTAN
  20. IMITREX [Concomitant]
     Active Substance: SUMATRIPTAN\SUMATRIPTAN SUCCINATE
  21. VITAMIN D [Concomitant]
     Active Substance: CHOLECALCIFEROL
  22. HYDROCODONE [Concomitant]
     Active Substance: HYDROCODONE
  23. FLEXERIL [Concomitant]
     Active Substance: CYCLOBENZAPRINE HYDROCHLORIDE
  24. ZOSYN [Concomitant]
     Active Substance: PIPERACILLIN SODIUM\TAZOBACTAM SODIUM
  25. TECFIDERA [Suspect]
     Active Substance: DIMETHYL FUMARATE
     Indication: MULTIPLE SCLEROSIS
     Route: 048
     Dates: start: 20130618
  26. TECFIDERA [Suspect]
     Active Substance: DIMETHYL FUMARATE
     Indication: MULTIPLE SCLEROSIS
     Route: 048
     Dates: start: 20130625, end: 20140107
  27. BIOTIN [Concomitant]
     Active Substance: BIOTIN
  28. CIALIS [Concomitant]
     Active Substance: TADALAFIL
  29. FLUORIDE [Concomitant]
     Active Substance: SODIUM FLUORIDE
  30. CYMBALTA [Concomitant]
     Active Substance: DULOXETINE HYDROCHLORIDE
  31. AMPYRA [Concomitant]
     Active Substance: DALFAMPRIDINE
  32. ASPIRIN. [Concomitant]
     Active Substance: ASPIRIN
     Dates: start: 20101108
  33. PREDNISONE. [Concomitant]
     Active Substance: PREDNISONE
  34. ENBREL [Concomitant]
     Active Substance: ETANERCEPT
  35. METHOTREXATE [Concomitant]
     Active Substance: METHOTREXATE
  36. RYTHMOL [Concomitant]
     Active Substance: PROPAFENONE HYDROCHLORIDE

REACTIONS (2)
  - Anaphylactic reaction [Recovered/Resolved]
  - Hypersensitivity [Recovered/Resolved]

NARRATIVE: CASE EVENT DATE: 20131215
